FAERS Safety Report 4622398-1 (Version None)
Quarter: 2005Q1

REPORT INFORMATION
  Report Type: 
  Country: None (occurrence: None)
  Receive Date: 20050317
  Receipt Date: 20040204
  Transmission Date: 20050727
  Serious: Yes (Other)
  Sender: FDA-Public Use
  Company Number: PHEH2004US01567

PATIENT
  Age: 15 Year
  Sex: Female

DRUGS (1)
  1. TRILEPTAL [Suspect]
     Indication: CONVULSION
     Dosage: 6000 MG QAM + 750 MG QHS, ORAL
     Route: 048
     Dates: start: 20030801

REACTIONS (6)
  - CONSTIPATION [None]
  - DIZZINESS [None]
  - FATIGUE [None]
  - PHARYNGOLARYNGEAL PAIN [None]
  - TEMPERATURE INTOLERANCE [None]
  - THYROXINE DECREASED [None]
